FAERS Safety Report 12285711 (Version 1)
Quarter: 2016Q2

REPORT INFORMATION
  Report Type: Spontaneous
  Country: US (occurrence: None)
  Receive Date: 20160419
  Receipt Date: 20160419
  Transmission Date: 20160815
  Serious: No
  Sender: FDA-Public Use
  Company Number: None

PATIENT
  Age: 82 Year
  Sex: Female
  Weight: 54.43 kg

DRUGS (8)
  1. ENALAPRIL [Concomitant]
     Active Substance: ENALAPRIL
  2. LORATADINE. [Concomitant]
     Active Substance: LORATADINE
  3. CQ 10 [Concomitant]
  4. CALCIUM [Concomitant]
     Active Substance: CALCIUM
  5. MELOXICAM. [Concomitant]
     Active Substance: MELOXICAM
  6. TRAMADOL. [Concomitant]
     Active Substance: TRAMADOL
  7. TRIAMTERENEHYDRO [Concomitant]
  8. BACTRIM [Suspect]
     Active Substance: SULFAMETHOXAZOLE\TRIMETHOPRIM
     Indication: INFECTION
     Route: 048
     Dates: start: 20160403, end: 20160409

REACTIONS (9)
  - Swelling face [None]
  - Rash [None]
  - Stomatitis [None]
  - Nausea [None]
  - Hypophagia [None]
  - Rash generalised [None]
  - Nasal ulcer [None]
  - Hepatic enzyme increased [None]
  - Pruritus [None]

NARRATIVE: CASE EVENT DATE: 20160403
